FAERS Safety Report 20546004 (Version 4)
Quarter: 2022Q3

REPORT INFORMATION
  Report Type: Spontaneous
  Country: JP (occurrence: JP)
  Receive Date: 20220303
  Receipt Date: 20220715
  Transmission Date: 20221026
  Serious: No
  Sender: FDA-Public Use
  Company Number: JP-GLAXOSMITHKLINE-JP2022JPN034955

PATIENT

DRUGS (13)
  1. SOTROVIMAB [Suspect]
     Active Substance: SOTROVIMAB
     Indication: COVID-19
     Dosage: 500 MG/100 ML/30 MINUTES, QD
     Dates: start: 20220203, end: 20220203
  2. VEKLURY [Suspect]
     Active Substance: REMDESIVIR
     Indication: COVID-19
     Dosage: 200 MG
     Dates: start: 20220203, end: 20220203
  3. VEKLURY [Suspect]
     Active Substance: REMDESIVIR
     Dosage: 100 MG
     Dates: start: 20220204, end: 20220205
  4. MAGNESIUM OXIDE [Concomitant]
     Active Substance: MAGNESIUM OXIDE
     Dosage: 330 MG, TID, AFTER BREAKFAST, LUNCH AND DINNER
     Dates: start: 20220204, end: 20220205
  5. BIOFERMIN POWDER [Concomitant]
     Dosage: 1 G, TID, AFTER BREAKFAST, LUNCH AND DINNER
     Dates: start: 20220204, end: 20220205
  6. BUFFERIN COMBINATION TABLET [Concomitant]
     Dosage: 1 DF, QD, AFTER BREAKFAST
     Dates: start: 20220204, end: 20220205
  7. ALLELOCK [Concomitant]
     Active Substance: OLOPATADINE HYDROCHLORIDE
     Indication: Seborrhoeic dermatitis
     Dosage: 5 MG, BID, AFTER BREAKFAST AND BEFORE BED
     Dates: start: 20220204, end: 20220205
  8. ALLELOCK [Concomitant]
     Active Substance: OLOPATADINE HYDROCHLORIDE
     Indication: Eczema asteatotic
  9. ATARAX TABLET (HYDROXYZINE HYDROCHLORIDE) [Concomitant]
     Indication: Seborrhoeic dermatitis
     Dosage: 10 MG, TID, AFTER BREAKFAST AND LUNCH AND BEFORE BED, PULVERIZED DISPENSING
     Dates: start: 20220204, end: 20220205
  10. ATARAX TABLET (HYDROXYZINE HYDROCHLORIDE) [Concomitant]
     Indication: Eczema asteatotic
  11. LACTOSE [Concomitant]
     Active Substance: LACTOSE
     Indication: Seborrhoeic dermatitis
     Dosage: 0.5 G, TID, AFTER BREAKFAST AND LUNCH AND BEFORE BED, PULVERIZED DISPENSING
     Dates: start: 20220204, end: 20220205
  12. LACTOSE [Concomitant]
     Active Substance: LACTOSE
     Indication: Eczema asteatotic
  13. ISOTONIC SODIUM CHLORIDE SOLUTION SYRINGE [Concomitant]
     Dosage: 5 ML
     Route: 042
     Dates: start: 20220204, end: 20220205

REACTIONS (3)
  - Aspartate aminotransferase increased [Recovered/Resolved]
  - Alanine aminotransferase increased [Recovered/Resolved]
  - Infusion related reaction [Recovered/Resolved]

NARRATIVE: CASE EVENT DATE: 20220205
